FAERS Safety Report 11068786 (Version 1)
Quarter: 2015Q2

REPORT INFORMATION
  Report Type: Spontaneous
  Country: US (occurrence: US)
  Receive Date: 20150427
  Receipt Date: 20150427
  Transmission Date: 20150821
  Serious: Yes (Hospitalization, Disabling, Other)
  Sender: FDA-Public Use
  Company Number: US-009507513-0905USA04162

PATIENT
  Sex: Female
  Weight: 62.6 kg

DRUGS (3)
  1. FOSAMAX [Suspect]
     Active Substance: ALENDRONATE SODIUM
     Dosage: UNK
     Route: 048
  2. FOSAMAX [Suspect]
     Active Substance: ALENDRONATE SODIUM
     Indication: OSTEOPENIA
     Dosage: 35 MG, QW
     Route: 048
     Dates: start: 20010901, end: 20020819
  3. FOSAMAX [Suspect]
     Active Substance: ALENDRONATE SODIUM
     Dosage: 70 MG, QW
     Route: 048
     Dates: start: 20020819, end: 20070705

REACTIONS (28)
  - Femur fracture [Recovered/Resolved]
  - Stress fracture [Unknown]
  - Urinary tract infection [Unknown]
  - Postmenopausal haemorrhage [Unknown]
  - Cystocele [Unknown]
  - Muscle strain [Unknown]
  - Basal cell carcinoma [Unknown]
  - Fall [Unknown]
  - Limb injury [Unknown]
  - Vaginal prolapse [Unknown]
  - Radiculitis [Unknown]
  - Osteoporosis [Unknown]
  - Laceration [Unknown]
  - Pneumonia [Unknown]
  - Bursitis [Unknown]
  - Chest pain [Unknown]
  - Laceration [Unknown]
  - Muscle spasms [Unknown]
  - Chest pain [Unknown]
  - Anaemia postoperative [Unknown]
  - Dehydration [Unknown]
  - Muscle spasms [Unknown]
  - Fibroadenoma of breast [Unknown]
  - Uterine leiomyoma [Unknown]
  - Intervertebral disc degeneration [Unknown]
  - Nerve root compression [Unknown]
  - Osteoarthritis [Unknown]
  - Urethral caruncle [Unknown]

NARRATIVE: CASE EVENT DATE: 20060907
